FAERS Safety Report 4880715-1 (Version None)
Quarter: 2006Q1

REPORT INFORMATION
  Report Type: 
  Country: None (occurrence: None)
  Receive Date: 20060113
  Receipt Date: 20051005
  Transmission Date: 20060701
  Serious: Yes (Other)
  Sender: FDA-Public Use
  Company Number: US-MERCK-0510USA04695

PATIENT
  Age: 52 Year
  Sex: Female

DRUGS (1)
  1. VIOXX [Suspect]
     Route: 048

REACTIONS (7)
  - AORTIC OCCLUSION [None]
  - CARDIOVASCULAR DISORDER [None]
  - ILIAC ARTERY OCCLUSION [None]
  - ILIAC ARTERY STENOSIS [None]
  - INTERMITTENT CLAUDICATION [None]
  - PERIPHERAL ARTERIAL OCCLUSIVE DISEASE [None]
  - THROMBOSIS [None]
